FAERS Safety Report 7308052-6 (Version None)
Quarter: 2011Q1

REPORT INFORMATION
  Report Type: 
  Country: None (occurrence: None)
  Receive Date: 20110210
  Receipt Date: 20110202
  Transmission Date: 20110831
  Serious: No
  Sender: FDA-Public Use
  Company Number: JP1-P-013551

PATIENT
  Age: 66 Year
  Sex: Female

DRUGS (4)
  1. LOVAZA [Concomitant]
  2. XYREM [Suspect]
     Indication: FIBROMYALGIA
     Dosage: 6 G, )3 G,. 2 OM 1 D), ORAL; 7.5 GM (3.75 GM, 2 IN 1 D), ORAL
     Route: 048
     Dates: start: 20100121
  3. XYREM [Suspect]
     Indication: FIBROMYALGIA
     Dosage: 6 G, )3 G,. 2 OM 1 D), ORAL; 7.5 GM (3.75 GM, 2 IN 1 D), ORAL
     Route: 048
     Dates: start: 20101006
  4. LEVOTHYROXINE [Concomitant]

REACTIONS (1)
  - NO ADVERSE EVENT [None]
